FAERS Safety Report 23064523 (Version 1)
Quarter: 2023Q4

REPORT INFORMATION
  Report Type: Spontaneous
  Country: PR (occurrence: PR)
  Receive Date: 20231013
  Receipt Date: 20231013
  Transmission Date: 20240109
  Serious: No
  Sender: FDA-Public Use
  Company Number: PR-BAYER-2023A142997

PATIENT
  Age: 48 Year

DRUGS (1)
  1. GADOBUTROL [Suspect]
     Active Substance: GADOBUTROL
     Indication: Magnetic resonance imaging
     Dosage: UNK, ONCE
     Dates: start: 20230910, end: 20230910

REACTIONS (1)
  - Urticaria [None]

NARRATIVE: CASE EVENT DATE: 20230910
